FAERS Safety Report 20088460 (Version 4)
Quarter: 2022Q4

REPORT INFORMATION
  Report Type: Report from Study
  Country: JP (occurrence: JP)
  Receive Date: 20211118
  Receipt Date: 20221219
  Transmission Date: 20230113
  Serious: Yes (Disabling, Other)
  Sender: FDA-Public Use
  Company Number: JP-SA-2021SA380473

PATIENT
  Age: 68 Year
  Sex: Female
  Weight: 48 kg

DRUGS (19)
  1. DUPILUMAB [Suspect]
     Active Substance: DUPILUMAB
     Indication: Asthma
     Dosage: 600 MG, 1X
     Route: 058
     Dates: start: 20210315, end: 20210315
  2. DUPILUMAB [Suspect]
     Active Substance: DUPILUMAB
     Dosage: 300 MG, QOW
     Route: 058
     Dates: start: 20210329, end: 20210524
  3. DUPIXENT [Suspect]
     Active Substance: DUPILUMAB
     Indication: Asthma
     Dosage: 300 MG, QOW
     Route: 058
     Dates: start: 20210607, end: 20210830
  4. PREDONINE [Concomitant]
     Active Substance: PREDNISOLONE
     Indication: Asthma
     Dosage: DAILY DOSAGE: 5 MG
     Route: 048
     Dates: start: 20181112, end: 20210607
  5. PREDONINE [Concomitant]
     Active Substance: PREDNISOLONE
     Dosage: DAILY DOSAGE: 20 MG
     Route: 048
     Dates: start: 20201221, end: 20201226
  6. PREDONINE [Concomitant]
     Active Substance: PREDNISOLONE
     Dosage: DAILY DOSAGE: 20 MG
     Route: 048
     Dates: start: 20210110, end: 20210114
  7. PREDONINE [Concomitant]
     Active Substance: PREDNISOLONE
     Dosage: DAILY DOSAGE: 20 MG
     Route: 048
     Dates: start: 20210119, end: 20210123
  8. PREDONINE [Concomitant]
     Active Substance: PREDNISOLONE
     Dosage: DAILY DOSAGE: 20 MG
     Route: 048
     Dates: start: 20210127, end: 20210129
  9. PREDONINE [Concomitant]
     Active Substance: PREDNISOLONE
     Dosage: DAILY DOSAGE: 20 MG
     Route: 048
     Dates: start: 20210213, end: 20210215
  10. PREDONINE [Concomitant]
     Active Substance: PREDNISOLONE
     Dosage: DAILY DOSAGE: 20 MG
     Route: 048
     Dates: start: 20210304, end: 20210308
  11. PREDONINE [Concomitant]
     Active Substance: PREDNISOLONE
     Dosage: 5 MG ADMINISTERED QOD
     Route: 048
     Dates: start: 20210608
  12. FLUTICASONE PROPIONATE\FORMOTEROL FUMARATE [Concomitant]
     Active Substance: FLUTICASONE PROPIONATE\FORMOTEROL FUMARATE
     Indication: Asthma
     Dosage: DAILY DOSAGE: 8 INHALATIONS
     Route: 055
  13. SINGULAIR [Concomitant]
     Active Substance: MONTELUKAST SODIUM
     Indication: Asthma
     Dosage: DAILY DOSAGE: 10 MG, SEVERAL TIMES A DAY
     Route: 048
  14. THEO-DUR [Concomitant]
     Active Substance: THEOPHYLLINE ANHYDROUS
     Indication: Asthma
     Dosage: DAILY DOSAGE: 200 MG, SEVERAL TIMES A DAY
     Route: 048
  15. SPIRIVA [Concomitant]
     Active Substance: TIOTROPIUM BROMIDE MONOHYDRATE
     Indication: Asthma
     Dosage: DAILY DOSAGE: 5 UG, SEVERAL TIMES A DAY
     Route: 055
  16. PROCATEROL HYDROCHLORIDE [Concomitant]
     Active Substance: PROCATEROL HYDROCHLORIDE
     Indication: Asthma
     Dosage: DAILY DOSAGE: 20 UG, SEVERAL TIMES A WEEK
     Route: 055
  17. TEPRENONE [Concomitant]
     Active Substance: TEPRENONE
     Indication: Prophylaxis
     Dosage: 100 MG/DAY, SEVERAL TIMES A DAY
     Route: 065
     Dates: start: 20210607
  18. ELDECALCITOL [Concomitant]
     Active Substance: ELDECALCITOL
     Indication: Osteoporosis
     Dosage: DAILY DOSAGE: 0.75 UG, SEVERAL TIMES A DAY
     Route: 065
  19. RISEDRONATE SODIUM [Concomitant]
     Active Substance: RISEDRONATE SODIUM
     Indication: Osteoporosis
     Dosage: DAILY DOSAGE: 75 MG, SEVERAL TIMES A WEEK
     Route: 065

REACTIONS (3)
  - Mononeuropathy multiplex [Recovered/Resolved with Sequelae]
  - Neuropathy peripheral [Recovered/Resolved with Sequelae]
  - Eosinophil count increased [Recovered/Resolved with Sequelae]

NARRATIVE: CASE EVENT DATE: 20210830
